FAERS Safety Report 4560471-7 (Version None)
Quarter: 2005Q1

REPORT INFORMATION
  Report Type: 
  Country: None (occurrence: None)
  Receive Date: 20050125
  Receipt Date: 20030605
  Transmission Date: 20050727
  Serious: Yes (Other)
  Sender: FDA-Public Use
  Company Number: US-MERCK-0306USA00923

PATIENT
  Age: 50 Year
  Sex: Female
  Weight: 83 kg

DRUGS (1)
  1. VIOXX [Suspect]
     Indication: PAIN
     Route: 048
     Dates: start: 20001101, end: 20010227

REACTIONS (48)
  - ABDOMINAL PAIN UPPER [None]
  - ABSCESS [None]
  - ADVERSE EVENT [None]
  - ANGINA PECTORIS [None]
  - ARTHRALGIA [None]
  - ARTHRITIS [None]
  - BACK PAIN [None]
  - BLINDNESS TRANSIENT [None]
  - BLOOD PRESSURE INCREASED [None]
  - CARPAL TUNNEL SYNDROME [None]
  - CHEST PAIN [None]
  - CHRONIC OBSTRUCTIVE PULMONARY DISEASE [None]
  - CONDITION AGGRAVATED [None]
  - CONJUNCTIVITIS [None]
  - CONVULSION [None]
  - CORONARY ARTERY DISEASE [None]
  - DRUG INEFFECTIVE [None]
  - DUODENAL ULCER [None]
  - EAR PAIN [None]
  - EYE PAIN [None]
  - FALL [None]
  - FURUNCLE [None]
  - GASTROOESOPHAGEAL REFLUX DISEASE [None]
  - GINGIVAL PAIN [None]
  - GLAUCOMA [None]
  - HEADACHE [None]
  - HERPES ZOSTER [None]
  - HIATUS HERNIA [None]
  - HYPERHIDROSIS [None]
  - HYPERTENSION [None]
  - MEMORY IMPAIRMENT [None]
  - NIGHT SWEATS [None]
  - OSTEOARTHRITIS [None]
  - PAIN [None]
  - PAIN IN EXTREMITY [None]
  - PAPILLOEDEMA [None]
  - PARALYSIS [None]
  - PERIARTHRITIS [None]
  - RASH [None]
  - RESPIRATORY TRACT CONGESTION [None]
  - ROAD TRAFFIC ACCIDENT [None]
  - SKIN PAPILLOMA [None]
  - SUBCUTANEOUS ABSCESS [None]
  - TENDONITIS [None]
  - TRIGEMINAL NEURALGIA [None]
  - VIITH NERVE PARALYSIS [None]
  - VISION BLURRED [None]
  - VISUAL ACUITY REDUCED [None]
